FAERS Safety Report 7424094-4 (Version None)
Quarter: 2011Q2

REPORT INFORMATION
  Report Type: 
  Country: None (occurrence: None)
  Receive Date: 20110419
  Receipt Date: 20110415
  Transmission Date: 20111010
  Serious: Yes (Other)
  Sender: FDA-Public Use
  Company Number: GXKR2011DE01489

PATIENT

DRUGS (1)
  1. BISOPROLOL FUMARATE [Suspect]
     Dosage: MATERNAL DOSE: 10 MG, UNK
     Route: 064

REACTIONS (3)
  - SMALL FOR DATES BABY [None]
  - PREMATURE BABY [None]
  - GROWTH RETARDATION [None]
